FAERS Safety Report 9174245 (Version 1)
Quarter: 2013Q1

REPORT INFORMATION
  Report Type: Spontaneous
  Country: US (occurrence: US)
  Receive Date: 20130320
  Receipt Date: 20130320
  Transmission Date: 20140127
  Serious: Yes (Death, Other)
  Sender: FDA-Public Use
  Company Number: CHPA2013US004868

PATIENT
  Sex: Female

DRUGS (1)
  1. KERI UNKNOWN [Suspect]
     Dosage: UNK, UNK
     Route: 061

REACTIONS (3)
  - Death [Fatal]
  - Bedridden [Unknown]
  - Therapeutic response unexpected [Unknown]
